FAERS Safety Report 20539136 (Version 5)
Quarter: 2022Q4

REPORT INFORMATION
  Report Type: Report from Study
  Country: AT (occurrence: AT)
  Receive Date: 20220302
  Receipt Date: 20221105
  Transmission Date: 20230113
  Serious: Yes (Hospitalization, Other)
  Sender: FDA-Public Use
  Company Number: AT-CELLTRION INC.-2022AT002142

PATIENT

DRUGS (52)
  1. TRASTUZUMAB [Suspect]
     Active Substance: TRASTUZUMAB
     Indication: HER2 positive breast cancer
     Dosage: 1 TIMES IN 3 WEEK
     Dates: start: 20190724, end: 20190912
  2. ADO-TRASTUZUMAB EMTANSINE [Suspect]
     Active Substance: ADO-TRASTUZUMAB EMTANSINE
     Indication: HER2 positive breast cancer
     Dosage: 1 TIMES IN 3 WEEK
     Dates: start: 20200703, end: 20200703
  3. ADO-TRASTUZUMAB EMTANSINE [Suspect]
     Active Substance: ADO-TRASTUZUMAB EMTANSINE
     Dosage: 1 TIMES IN 3 WEEK
     Dates: start: 20191014, end: 20200518
  4. CAPECITABINE [Suspect]
     Active Substance: CAPECITABINE
     Indication: HER2 positive breast cancer
     Dosage: 1 TIMES IN 4 DAY
     Dates: start: 20210109, end: 20211209
  5. CAPECITABINE [Suspect]
     Active Substance: CAPECITABINE
     Dosage: 500 MG
     Dates: start: 20200923, end: 20201220
  6. PACLITAXEL [Suspect]
     Active Substance: PACLITAXEL
     Indication: HER2 positive breast cancer
     Dosage: 1 TIMES IN 3 WEEK
     Dates: start: 20190724, end: 20190912
  7. FAM-TRASTUZUMAB DERUXTECAN-NXKI [Suspect]
     Active Substance: FAM-TRASTUZUMAB DERUXTECAN-NXKI
     Indication: HER2 positive breast cancer
     Dosage: MOST RECENT DOSE PRIOR TO AE 31/JAN/20221 TIMES IN 3 WEEK
     Dates: start: 20220110
  8. LAPATINIB [Suspect]
     Active Substance: LAPATINIB
     Indication: HER2 positive breast cancer
     Dosage: 4 TIMES IN 1 DAY
     Dates: start: 20210109, end: 20211216
  9. LAPATINIB [Suspect]
     Active Substance: LAPATINIB
     Dosage: MOST RECENT DOSE PRIOR TO THE EVENT: 09/JAN/2021
     Dates: start: 20200923, end: 20201228
  10. PERTUZUMAB [Suspect]
     Active Substance: PERTUZUMAB
     Indication: HER2 positive breast cancer
     Dosage: 420 MILLIGRAM, EVERY 3 WEEKS
     Dates: start: 20190724, end: 20190912
  11. ACETAMINOPHEN [Concomitant]
     Active Substance: ACETAMINOPHEN
     Dosage: PRN
     Dates: start: 20190701
  12. NEULASTA [Concomitant]
     Active Substance: PEGFILGRASTIM
     Dates: start: 20220420
  13. ZOFRAN [Concomitant]
     Active Substance: ONDANSETRON HYDROCHLORIDE
     Indication: COVID-19
     Dosage: ONGOING = CHECKED1 TIMES IN 3 WEEK
     Dates: start: 20220110
  14. ZOFRAN [Concomitant]
     Active Substance: ONDANSETRON HYDROCHLORIDE
     Dosage: PRN
     Dates: start: 20190704, end: 20200703
  15. ZOFRAN [Concomitant]
     Active Substance: ONDANSETRON HYDROCHLORIDE
     Dosage: 2 TIMES IN 1 DAY
     Dates: start: 20190705, end: 20190914
  16. ZOFRAN [Concomitant]
     Active Substance: ONDANSETRON HYDROCHLORIDE
     Dosage: 4 MG, QD
     Dates: start: 20210302, end: 20210302
  17. ZOFRAN [Concomitant]
     Active Substance: ONDANSETRON HYDROCHLORIDE
     Dosage: PRN
     Dates: start: 20190701
  18. LOVENOX [Concomitant]
     Active Substance: ENOXAPARIN SODIUM
     Indication: COVID-19
     Dates: start: 20210302, end: 20210305
  19. EMEND [Concomitant]
     Active Substance: APREPITANT
     Dates: start: 20220621
  20. CALCIDURAN [ASCORBIC ACID;CALCIUM PHOSPHATE;CITRIC ACID;COLECALCIFEROL [Concomitant]
     Dosage: ONGOING = CHECKED
     Dates: start: 20190717
  21. SUCRALAN [Concomitant]
     Dosage: PRN
     Dates: start: 20190701
  22. ACETAMINOPHEN [Concomitant]
     Active Substance: ACETAMINOPHEN
     Indication: COVID-19
     Dosage: PRN (AS NEEDED)
     Dates: start: 20210302, end: 20210303
  23. LOPERAMIDE HYDROCHLORIDE [Concomitant]
     Active Substance: LOPERAMIDE HYDROCHLORIDE
     Indication: Diarrhoea
     Dosage: PRN
     Dates: start: 20210215
  24. PANTOPRAZOLE SODIUM [Concomitant]
     Active Substance: PANTOPRAZOLE SODIUM
     Indication: COVID-19
     Dosage: ONGOING = CHECKED
     Dates: start: 20210222, end: 20210302
  25. PANTOPRAZOLE SODIUM [Concomitant]
     Active Substance: PANTOPRAZOLE SODIUM
     Dosage: ONGOING = CHECKED
     Dates: start: 20190701
  26. URSODIOL [Concomitant]
     Active Substance: URSODIOL
     Dates: start: 20220401
  27. DRONABINOL [Concomitant]
     Active Substance: DRONABINOL
     Dosage: ONGOING = CHECKED
     Dates: start: 20210705
  28. DRONABINOL [Concomitant]
     Active Substance: DRONABINOL
     Dosage: 2 DROP-2 DROP-2 DROP
     Dates: start: 20190716, end: 20210804
  29. POLYETHYLENE GLYCOL 4000 [Concomitant]
     Active Substance: POLYETHYLENE GLYCOL 4000
     Dosage: ONGOING = CHECKED
     Dates: start: 20190705
  30. DEXAMETHASONE [Concomitant]
     Active Substance: DEXAMETHASONE
     Indication: COVID-19
     Dosage: 6 MG, QD
     Dates: start: 20210302, end: 20210304
  31. DEXAMETHASONE [Concomitant]
     Active Substance: DEXAMETHASONE
     Dosage: 8 MG
     Dates: start: 20190705, end: 20190914
  32. DEXAMETHASONE [Concomitant]
     Active Substance: DEXAMETHASONE
     Dosage: 8 MG
     Dates: start: 20190704, end: 20190912
  33. DEXAMETHASONE [Concomitant]
     Active Substance: DEXAMETHASONE
     Dosage: 8 MG, EVERY 3 WEEKS
     Dates: start: 20220110
  34. DEXAMETHASONE [Concomitant]
     Active Substance: DEXAMETHASONE
     Dosage: UNK
     Dates: start: 20220113, end: 20220114
  35. DEXAMETHASONE [Concomitant]
     Active Substance: DEXAMETHASONE
     Dosage: UNK
     Dates: start: 20220111, end: 20220112
  36. DEXAMETHASONE [Concomitant]
     Active Substance: DEXAMETHASONE
     Dosage: UNK
     Dates: start: 20220115, end: 20220323
  37. VALACYCLOVIR HYDROCHLORIDE [Concomitant]
     Active Substance: VALACYCLOVIR HYDROCHLORIDE
     Dosage: 500 MG, 1/DAY
     Dates: start: 20190716, end: 20191011
  38. AMOXICILLIN\CLAVULANATE POTASSIUM [Concomitant]
     Active Substance: AMOXICILLIN\CLAVULANATE POTASSIUM
     Indication: Influenza
     Dosage: 2 TIMES IN 1 DAY
     Dates: start: 20200527, end: 20200602
  39. LENDORM [Concomitant]
     Active Substance: BROTIZOLAM
     Indication: Insomnia
     Dosage: PRN
     Dates: start: 20211229
  40. EUTHYROX [Concomitant]
     Active Substance: LEVOTHYROXINE SODIUM
     Dosage: 75 ?G, QD
     Dates: end: 201906
  41. EUTHYROX [Concomitant]
     Active Substance: LEVOTHYROXINE SODIUM
     Dosage: 50 MICROGRAM, QD
     Dates: start: 20190703, end: 20200929
  42. EUTHYROX [Concomitant]
     Active Substance: LEVOTHYROXINE SODIUM
     Dosage: 25 MICROGRAM, 1 PER DAY
     Dates: start: 20200930, end: 20210108
  43. HYDROMORPHONE HYDROCHLORIDE [Concomitant]
     Active Substance: HYDROMORPHONE HYDROCHLORIDE
     Dosage: 2 TIMES IN 1 DAY
     Dates: start: 20190716, end: 20200927
  44. HYDROMORPHONE HYDROCHLORIDE [Concomitant]
     Active Substance: HYDROMORPHONE HYDROCHLORIDE
     Dosage: 2 TIMES IN 1 DAY
     Dates: start: 20220207
  45. HYDROMORPHONE HYDROCHLORIDE [Concomitant]
     Active Substance: HYDROMORPHONE HYDROCHLORIDE
     Dosage: PRN
     Dates: start: 20190716
  46. TRAZODONE HYDROCHLORIDE [Concomitant]
     Active Substance: TRAZODONE HYDROCHLORIDE
     Dosage: 150 MG, QD
     Dates: start: 20190716, end: 20200926
  47. ALPRAZOLAM [Concomitant]
     Active Substance: ALPRAZOLAM
     Dosage: PRN
     Dates: start: 20190715
  48. CEOLAT [Concomitant]
     Dosage: OTHER UP TO 3 X DAILY 10 ML
     Dates: start: 20190815
  49. CITALOPRAM [Concomitant]
     Active Substance: CITALOPRAM HYDROBROMIDE
     Dosage: ONGOING = CHECKED
     Dates: start: 20190715
  50. OLANZAPINE [Concomitant]
     Active Substance: OLANZAPINE
     Dosage: OTHER 0-0-1/2
     Dates: start: 20190904, end: 20200926
  51. OLANZAPINE [Concomitant]
     Active Substance: OLANZAPINE
     Dosage: OTHER 0-0-1/2
     Dates: start: 20190821, end: 20190904
  52. NEURONTIN [Concomitant]
     Active Substance: GABAPENTIN
     Dosage: 2 TIMES IN 1 DAY
     Dates: start: 201908, end: 201908

REACTIONS (5)
  - Pyrexia [Not Recovered/Not Resolved]
  - Intracranial pressure increased [Not Recovered/Not Resolved]
  - Iron deficiency anaemia [Recovered/Resolved]
  - Gamma-glutamyltransferase increased [Not Recovered/Not Resolved]
  - Insomnia [Not Recovered/Not Resolved]

NARRATIVE: CASE EVENT DATE: 20211227
